FAERS Safety Report 7841075-7 (Version None)
Quarter: 2011Q4

REPORT INFORMATION
  Report Type: 
  Country: None (occurrence: None)
  Receive Date: 20111020
  Receipt Date: 20111004
  Transmission Date: 20120403
  Serious: Yes (Life-Threatening, Hospitalization, Other)
  Sender: FDA-Public Use
  Company Number: 2011MA014918

PATIENT
  Age: 41 Year
  Sex: Female

DRUGS (1)
  1. VERAPAMIL HYDROCHLORIDE [Suspect]
     Indication: INTENTIONAL OVERDOSE
     Dosage: 19200 MG;X1;PO
     Route: 048

REACTIONS (21)
  - RENAL FAILURE [None]
  - LEUKOCYTOSIS [None]
  - CULTURE URINE POSITIVE [None]
  - BRADYCARDIA [None]
  - ELECTROCARDIOGRAM T WAVE INVERSION [None]
  - SUICIDE ATTEMPT [None]
  - LEFT VENTRICULAR HYPERTROPHY [None]
  - ELECTROCARDIOGRAM POOR R-WAVE PROGRESSION [None]
  - VENTRICULAR EXTRASYSTOLES [None]
  - ATRIOVENTRICULAR BLOCK COMPLETE [None]
  - PNEUMATOSIS INTESTINALIS [None]
  - HAEMATOCRIT DECREASED [None]
  - FLUID OVERLOAD [None]
  - LETHARGY [None]
  - STAPHYLOCOCCUS TEST POSITIVE [None]
  - INTENTIONAL OVERDOSE [None]
  - ACUTE RESPIRATORY FAILURE [None]
  - BLOOD CALCIUM INCREASED [None]
  - METABOLIC ACIDOSIS [None]
  - HYPERCOAGULATION [None]
  - HYPOTENSION [None]
